FAERS Safety Report 8842462 (Version 6)
Quarter: 2013Q3

REPORT INFORMATION
  Report Type: Spontaneous
  Country: US (occurrence: US)
  Receive Date: 20121016
  Receipt Date: 20130919
  Transmission Date: 20140515
  Serious: Yes (Hospitalization, Disabling, Other)
  Sender: FDA-Public Use
  Company Number: US-009507513-2012SP035539

PATIENT
  Sex: Female
  Weight: 81.63 kg

DRUGS (6)
  1. NUVARING [Suspect]
     Indication: CONTRACEPTION
     Dosage: UNK
     Dates: start: 20070419, end: 20070519
  2. SEROQUEL [Concomitant]
     Indication: BIPOLAR DISORDER
     Dosage: UNK
     Dates: start: 2005, end: 2012
  3. LORTAB [Concomitant]
     Indication: PAIN
     Dosage: UNK
     Dates: start: 2005
  4. BUSPIRONE HYDROCHLORIDE [Concomitant]
     Indication: NERVOUSNESS
     Dosage: UNK
     Dates: start: 2005
  5. OMEPRAZOLE [Concomitant]
     Indication: GASTROOESOPHAGEAL REFLUX DISEASE
     Dosage: UNK
     Dates: start: 2005, end: 2012
  6. OMEPRAZOLE [Concomitant]
     Indication: ABDOMINAL PAIN UPPER

REACTIONS (34)
  - Relapsing-remitting multiple sclerosis [Not Recovered/Not Resolved]
  - Cerebrovascular accident [Unknown]
  - Gastroenteritis [Unknown]
  - Dizziness [Unknown]
  - Type 2 diabetes mellitus [Unknown]
  - Migraine [Not Recovered/Not Resolved]
  - Automatic bladder [Unknown]
  - Restless legs syndrome [Unknown]
  - Insomnia [Unknown]
  - Bacterial toxaemia [Unknown]
  - Hysterectomy [Unknown]
  - Menorrhagia [Unknown]
  - Blood pressure increased [Recovering/Resolving]
  - Nasopharyngitis [Unknown]
  - Wisdom teeth removal [Unknown]
  - Abnormal weight gain [Unknown]
  - Pelvic inflammatory disease [Recovered/Resolved]
  - Urinary incontinence [Unknown]
  - Multiple sclerosis relapse [Unknown]
  - Depression [Unknown]
  - Maternal exposure before pregnancy [Unknown]
  - Caesarean section [Unknown]
  - Cervical dysplasia [Unknown]
  - Asthenia [Unknown]
  - Fatigue [Unknown]
  - Tinnitus [Unknown]
  - Chest pain [Unknown]
  - Palpitations [Unknown]
  - Abdominal pain [Unknown]
  - Micturition urgency [Unknown]
  - Mood altered [Unknown]
  - Back pain [Unknown]
  - Menometrorrhagia [Unknown]
  - Hysterectomy [Unknown]
